FAERS Safety Report 5599286-X (Version None)
Quarter: 2008Q1

REPORT INFORMATION
  Report Type: 
  Country: None (occurrence: None)
  Receive Date: 20080117
  Receipt Date: 20080109
  Transmission Date: 20080703
  Serious: Yes (Death, Life-Threatening, Hospitalization)
  Sender: FDA-Public Use
  Company Number: CLOF-10792

PATIENT
  Age: 7 Year
  Sex: Female
  Weight: 35 kg

DRUGS (3)
  1. CLOFARABINE (CLOFARABINE) [Suspect]
     Indication: ACUTE LYMPHOCYTIC LEUKAEMIA
     Dosage: 47 MG, QDX5, INTRAVNEOUS
     Route: 042
     Dates: start: 20071025, end: 20071029
  2. ETOPOSIDE [Suspect]
     Indication: ACUTE LYMPHOCYTIC LEUKAEMIA
     Dosage: 117 MG, QDX5, INTRAVENOUS
     Route: 042
     Dates: start: 20071025, end: 20071029
  3. CYCLOPHOSPHAMIDE [Suspect]
     Indication: ACUTE LYMPHOCYTIC LEUKAEMIA
     Dosage: 515 MG, QDX5, INTRAVENOUS
     Route: 042
     Dates: start: 20071025, end: 20071029

REACTIONS (18)
  - ASPERGILLOSIS [None]
  - ATELECTASIS [None]
  - BACTERIAL INFECTION [None]
  - BONE MARROW FAILURE [None]
  - BRADYCARDIA [None]
  - CENTRAL LINE INFECTION [None]
  - CONVULSION [None]
  - FEBRILE NEUTROPENIA [None]
  - HAEMATOCRIT DECREASED [None]
  - HAEMOGLOBIN DECREASED [None]
  - NECROSIS [None]
  - PLATELET COUNT DECREASED [None]
  - PLEURAL EFFUSION [None]
  - PNEUMOTHORAX [None]
  - PULMONARY HAEMORRHAGE [None]
  - RESPIRATORY TRACT INFECTION FUNGAL [None]
  - STAPHYLOCOCCAL INFECTION [None]
  - THROMBOCYTOPENIA [None]
